FAERS Safety Report 5097270-6 (Version None)
Quarter: 2006Q3

REPORT INFORMATION
  Report Type: 
  Country: None (occurrence: None)
  Receive Date: 20060901
  Receipt Date: 20060525
  Transmission Date: 20061208
  Serious: Yes (Other)
  Sender: FDA-Public Use
  Company Number: 2006056868

PATIENT
  Age: 50 Year
  Sex: Female

DRUGS (14)
  1. BEXTRA [Suspect]
     Indication: ARTHRALGIA
     Dosage: 10 MG (10 MG, 1 IN 1 D)
     Dates: start: 20040512
  2. UNIVASC [Concomitant]
  3. CELEXA [Concomitant]
  4. METFORMIN HCL [Concomitant]
  5. PREMPHASE (ESTROGENS CONJUGATED, MEDROXYPROGRESTERONE ACETATE) [Concomitant]
  6. PROTONIX [Concomitant]
  7. ALLEGRA [Concomitant]
  8. ALBUTEROL [Concomitant]
  9. PULMICORT [Concomitant]
  10. MULTIVITAMIN [Concomitant]
  11. ZYRTEC [Concomitant]
  12. MOEXIPRIL (MOEXIPRIL) [Concomitant]
  13. ZOCOR [Concomitant]
  14. CELEBREX [Concomitant]

REACTIONS (5)
  - ACTIVITIES OF DAILY LIVING IMPAIRED [None]
  - DRUG HYPERSENSITIVITY [None]
  - EYE SWELLING [None]
  - SWELLING FACE [None]
  - URTICARIA [None]
